FAERS Safety Report 4455759-4 (Version None)
Quarter: 2004Q3

REPORT INFORMATION
  Report Type: 
  Country: None (occurrence: None)
  Receive Date: 20040921
  Receipt Date: 20040908
  Transmission Date: 20050211
  Serious: Yes (Hospitalization)
  Sender: FDA-Public Use
  Company Number: 2004UW15952

PATIENT
  Age: 61 Year
  Sex: Male
  Weight: 158.759 kg

DRUGS (5)
  1. CRESTOR [Suspect]
     Indication: HYPERLIPIDAEMIA
     Dosage: 10 MG QD PO
     Route: 048
     Dates: start: 20040401, end: 20040411
  2. CRESTOR [Suspect]
     Indication: HYPERLIPIDAEMIA
     Dosage: 10 MG QD PO
     Route: 048
     Dates: start: 20040615, end: 20040701
  3. WARFARIN SODIUM [Concomitant]
  4. MONOPRIL [Concomitant]
  5. LIPITOR [Concomitant]

REACTIONS (12)
  - BLOOD IMMUNOGLOBULIN A INCREASED [None]
  - CELLULITIS [None]
  - HAEMATURIA [None]
  - INTERVERTEBRAL DISC SPACE NARROWING [None]
  - LOCALISED OSTEOARTHRITIS [None]
  - LYMPHADENOPATHY [None]
  - NEUROPATHY [None]
  - NUCLEAR MAGNETIC RESONANCE IMAGING ABNORMAL [None]
  - PROTEIN URINE PRESENT [None]
  - RENAL CYST [None]
  - SPINAL OSTEOARTHRITIS [None]
  - VASCULITIS [None]
